FAERS Safety Report 6817976-5 (Version None)
Quarter: 2010Q3

REPORT INFORMATION
  Report Type: 
  Country: None (occurrence: None)
  Receive Date: 20100706
  Receipt Date: 20100426
  Transmission Date: 20110219
  Serious: Yes (Other)
  Sender: FDA-Public Use
  Company Number: US-JNJCH-2010015408

PATIENT
  Age: 53 Year
  Sex: Male
  Weight: 90.7 kg

DRUGS (5)
  1. ROLAIDS TAB [Suspect]
     Indication: DYSPEPSIA
     Dosage: TEXT:UNSPECIFIED AS NEEDED
     Route: 048
  2. EXTRA STRENGTH TYLENOL [Suspect]
     Indication: HEADACHE
     Dosage: TEXT:^A LOT^ GELCAPS UNSPECIFIED
     Route: 048
  3. EXTRA STRENGTH TYLENOL PM [Suspect]
     Indication: PRODUCT USED FOR UNKNOWN INDICATION
     Dosage: TEXT:^A LOT^, ^EVERY NIGHT FOR A YEAR^
     Route: 048
  4. DRUG, UNSPECIFIED [Concomitant]
     Indication: NAUSEA
     Dosage: TEXT:UNSPECIFIED
     Route: 065
  5. FISH OIL [Concomitant]
     Indication: BLOOD CHOLESTEROL
     Dosage: TEXT:UNSPECIFIED
     Route: 065

REACTIONS (5)
  - DIARRHOEA [None]
  - NAUSEA [None]
  - PRODUCT QUALITY ISSUE [None]
  - VOMITING [None]
  - WEIGHT DECREASED [None]
